FAERS Safety Report 17363293 (Version 3)
Quarter: 2020Q1

REPORT INFORMATION
  Report Type: Spontaneous
  Country: HU (occurrence: HU)
  Receive Date: 20200203
  Receipt Date: 20200219
  Transmission Date: 20200409
  Serious: No
  Sender: FDA-Public Use
  Company Number: NVSC2019HU086849

PATIENT
  Age: 49 Year
  Sex: Male

DRUGS (1)
  1. BRINZOLAMIDE/BRIMONIDINE TARTRATE [Suspect]
     Active Substance: BRIMONIDINE TARTRATE\BRINZOLAMIDE
     Indication: INTRAOCULAR PRESSURE DECREASED
     Dosage: UNK UNK, BID
     Route: 065

REACTIONS (1)
  - Intraocular pressure decreased [Unknown]

NARRATIVE: CASE EVENT DATE: 201806
